FAERS Safety Report 18622388 (Version 1)
Quarter: 2020Q4

REPORT INFORMATION
  Report Type: Spontaneous
  Country: US (occurrence: US)
  Receive Date: 20201215
  Receipt Date: 20201215
  Transmission Date: 20210114
  Serious: Yes (Hospitalization)
  Sender: FDA-Public Use
  Company Number: None

PATIENT
  Sex: Male

DRUGS (1)
  1. ZARXIO [Suspect]
     Active Substance: FILGRASTIM-SNDZ
     Indication: INFANTILE GENETIC AGRANULOCYTOSIS
     Dosage: ?          OTHER STRENGTH:300/0.5 UG/ML;OTHER FREQUENCY:TIW M/W/F;?
     Route: 058
     Dates: start: 20200430

REACTIONS (1)
  - Product storage error [None]
